FAERS Safety Report 9952867 (Version 1)
Quarter: 2014Q1

REPORT INFORMATION
  Report Type: Spontaneous
  Country: US (occurrence: US)
  Receive Date: 20140304
  Receipt Date: 20140304
  Transmission Date: 20141002
  Serious: No
  Sender: FDA-Public Use
  Company Number: US-ABBVIE-13P-163-1075091-00

PATIENT
  Age: 61 Year
  Sex: Female
  Weight: 65.83 kg

DRUGS (4)
  1. HUMIRA [Suspect]
     Indication: ANKYLOSING SPONDYLITIS
     Dates: start: 20121102
  2. LEVOTHYROXINE [Concomitant]
     Indication: HYPOTHYROIDISM
  3. EVISTA [Concomitant]
     Indication: PROPHYLAXIS
  4. NEBUMATONE [Concomitant]
     Indication: ANKYLOSING SPONDYLITIS

REACTIONS (3)
  - Nasopharyngitis [Recovered/Resolved]
  - Ankylosing spondylitis [Recovered/Resolved]
  - Drug effect incomplete [Not Recovered/Not Resolved]
